FAERS Safety Report 18784887 (Version 3)
Quarter: 2022Q3

REPORT INFORMATION
  Report Type: Other
  Country: CA (occurrence: CA)
  Receive Date: 20210126
  Receipt Date: 20220722
  Transmission Date: 20221027
  Serious: Yes (Other)
  Sender: FDA-Public Use
  Company Number: CA-CELLTRION INC.-2021CA000624

PATIENT

DRUGS (10)
  1. RITUXIMAB [Suspect]
     Active Substance: RITUXIMAB
     Indication: Rheumatoid arthritis
     Dosage: UNK
     Route: 042
  2. RITUXIMAB [Suspect]
     Active Substance: RITUXIMAB
     Dosage: UNK
     Route: 041
  3. ACTEMRA [Suspect]
     Active Substance: TOCILIZUMAB
     Indication: Rheumatoid arthritis
     Dosage: 462.0 MILLIGRAM
     Route: 042
  4. ACTEMRA [Suspect]
     Active Substance: TOCILIZUMAB
     Dosage: 456.0 MILLIGRAM, 1 EVERY 4 WEEKS
     Route: 042
  5. ACTEMRA [Suspect]
     Active Substance: TOCILIZUMAB
     Dosage: 456.0 MILLIGRAM, 1 EVERY 4 WEEKS
     Route: 042
  6. ACTEMRA [Suspect]
     Active Substance: TOCILIZUMAB
     Dosage: 480.0 MILLIGRAM, 1 EVERY 4 WEEKS
     Route: 042
  7. ACTEMRA [Suspect]
     Active Substance: TOCILIZUMAB
     Dosage: 464.0 MILLIGRAM, 1 EVERY 4 WEEKS
     Route: 042
  8. ACTEMRA [Suspect]
     Active Substance: TOCILIZUMAB
     Indication: Rheumatoid arthritis
     Dosage: 218.0 MILLIGRAM, 1 EVERY 4 WEEKS
     Route: 042
  9. IRON [Concomitant]
     Active Substance: IRON
  10. NAPROXEN [Concomitant]
     Active Substance: NAPROXEN
     Route: 065

REACTIONS (4)
  - Rheumatoid arthritis [Unknown]
  - Weight decreased [Unknown]
  - Weight increased [Unknown]
  - Maternal exposure during pregnancy [Unknown]
